FAERS Safety Report 10402625 (Version 1)
Quarter: 2014Q3

REPORT INFORMATION
  Report Type: Spontaneous
  Country: ES (occurrence: ES)
  Receive Date: 20140822
  Receipt Date: 20140822
  Transmission Date: 20150326
  Serious: Yes (Hospitalization, Other)
  Sender: FDA-Public Use
  Company Number: ES-ACTAVIS-2014-18050

PATIENT
  Age: 32 Year
  Sex: Female

DRUGS (2)
  1. HYDROCORTISONE (UNKNOWN) [Suspect]
     Active Substance: HYDROCORTISONE
     Dosage: 15 MG, DAILY, 10 MG IN THE MORNING, 5 MG IN THEB EVENINIG
     Route: 065
  2. HYDROCORTISONE (UNKNOWN) [Suspect]
     Active Substance: HYDROCORTISONE
     Indication: HYPOPITUITARISM
     Dosage: 30 MG, DAILY, 20 MG IN THE MORNIG, 10 MG IN THE EVENINING
     Route: 065

REACTIONS (1)
  - Osteonecrosis [Unknown]
